FAERS Safety Report 7289383-5 (Version None)
Quarter: 2011Q1

REPORT INFORMATION
  Report Type: 
  Country: None (occurrence: None)
  Receive Date: 20110211
  Receipt Date: 20110207
  Transmission Date: 20110831
  Serious: Yes (Hospitalization, Other)
  Sender: FDA-Public Use
  Company Number: US-PFIZER INC-2011028200

PATIENT
  Sex: Female

DRUGS (1)
  1. GEODON [Suspect]
     Indication: PSYCHOTIC DISORDER
     Dosage: UNK
     Route: 048
     Dates: start: 20090101

REACTIONS (7)
  - MENTAL DISORDER [None]
  - HOMICIDE [None]
  - DISORIENTATION [None]
  - DEPRESSED MOOD [None]
  - DYSARTHRIA [None]
  - POSTPARTUM DEPRESSION [None]
  - AGGRESSION [None]
